FAERS Safety Report 18210145 (Version 1)
Quarter: 2020Q3

REPORT INFORMATION
  Report Type: Spontaneous
  Country: US (occurrence: US)
  Receive Date: 20200829
  Receipt Date: 20200829
  Transmission Date: 20201103
  Serious: No
  Sender: FDA-Public Use
  Company Number: US-AJANTA PHARMA USA INC.-2089178

PATIENT
  Age: 61 Year
  Sex: Female
  Weight: 76.82 kg

DRUGS (2)
  1. SILDENAFIL (ANDA 210394) [Suspect]
     Active Substance: SILDENAFIL CITRATE
     Indication: PULMONARY HYPERTENSION
     Route: 048
  2. LOSARTAN. [Concomitant]
     Active Substance: LOSARTAN
     Route: 048
     Dates: start: 2018

REACTIONS (2)
  - Malaise [Not Recovered/Not Resolved]
  - Product substitution issue [Not Recovered/Not Resolved]
